FAERS Safety Report 15394461 (Version 2)
Quarter: 2018Q3

REPORT INFORMATION
  Report Type: Spontaneous
  Country: FR (occurrence: FR)
  Receive Date: 20180918
  Receipt Date: 20180925
  Transmission Date: 20181010
  Serious: Yes (Other)
  Sender: FDA-Public Use
  Company Number: FR-ROCHE-2185542

PATIENT
  Age: 50 Year
  Sex: Female
  Weight: 78 kg

DRUGS (10)
  1. METFORMIN [Concomitant]
     Active Substance: METFORMIN HYDROCHLORIDE
     Indication: HYPERGLYCAEMIA
     Route: 048
     Dates: start: 20180827
  2. INORIAL [Suspect]
     Active Substance: BILASTINE
     Route: 048
     Dates: start: 20180822, end: 20180826
  3. XOLAIR [Suspect]
     Active Substance: OMALIZUMAB
     Indication: URTICARIA
     Route: 065
     Dates: start: 20171229
  4. XOLAIR [Suspect]
     Active Substance: OMALIZUMAB
     Route: 065
     Dates: start: 20160421
  5. INORIAL [Suspect]
     Active Substance: BILASTINE
     Route: 048
     Dates: start: 20171229, end: 20180615
  6. INORIAL [Suspect]
     Active Substance: BILASTINE
     Route: 048
     Dates: start: 20180616, end: 20180621
  7. INORIAL [Suspect]
     Active Substance: BILASTINE
     Route: 048
     Dates: start: 20180622, end: 20180821
  8. EBASTINE [Concomitant]
     Active Substance: EBASTINE
     Indication: URTICARIA
     Dosage: UNK
     Route: 065
  9. INORIAL [Suspect]
     Active Substance: BILASTINE
     Indication: URTICARIA
     Route: 048
     Dates: start: 20151109, end: 20160421
  10. INORIAL [Suspect]
     Active Substance: BILASTINE
     Route: 048
     Dates: start: 2018

REACTIONS (4)
  - Hyperglycaemia [Not Recovered/Not Resolved]
  - Cataract [Recovered/Resolved]
  - Overdose [Unknown]
  - Off label use [Unknown]

NARRATIVE: CASE EVENT DATE: 20171229
